FAERS Safety Report 13550713 (Version 2)
Quarter: 2017Q3

REPORT INFORMATION
  Report Type: Spontaneous
  Country: FR (occurrence: FR)
  Receive Date: 20170516
  Receipt Date: 20170905
  Transmission Date: 20171127
  Serious: Yes (Hospitalization)
  Sender: FDA-Public Use
  Company Number: FR-JNJFOC-20170512505

PATIENT
  Age: 49 Year
  Sex: Female

DRUGS (5)
  1. ARTOTEC [Suspect]
     Active Substance: DICLOFENAC SODIUM\MISOPROSTOL
     Indication: BACK PAIN
     Route: 048
     Dates: start: 201703
  2. IXPRIM [Suspect]
     Active Substance: ACETAMINOPHEN\TRAMADOL HYDROCHLORIDE
     Indication: BACK PAIN
     Route: 048
     Dates: start: 201703
  3. BIPROFENID [Concomitant]
     Active Substance: KETOPROFEN
     Indication: MIGRAINE
     Route: 048
     Dates: start: 20170401, end: 20170401
  4. MEPHENESIN [Suspect]
     Active Substance: MEPHENESIN
     Indication: BACK PAIN
     Route: 048
     Dates: start: 201703
  5. EFFERALGAN [Concomitant]
     Active Substance: ACETAMINOPHEN
     Indication: MIGRAINE
     Route: 048
     Dates: start: 20170401, end: 20170401

REACTIONS (2)
  - Hepatitis acute [Recovered/Resolved]
  - Jaundice [Recovered/Resolved]

NARRATIVE: CASE EVENT DATE: 20170404
